FAERS Safety Report 7321772-2 (Version None)
Quarter: 2011Q1

REPORT INFORMATION
  Report Type: 
  Country: None (occurrence: None)
  Receive Date: 20110228
  Receipt Date: 20110223
  Transmission Date: 20110831
  Serious: Yes (Hospitalization, Other)
  Sender: FDA-Public Use
  Company Number: BR-ABBOTT-11P-020-0707492-00

PATIENT
  Sex: Female
  Weight: 91 kg

DRUGS (6)
  1. MESALAZINE [Concomitant]
     Indication: PROCTOCOLITIS
     Route: 048
  2. HUMIRA [Suspect]
     Route: 058
     Dates: end: 20101201
  3. MESALAZINE [Concomitant]
     Indication: CROHN'S DISEASE
  4. AZATHIOPRINE [Concomitant]
     Indication: ANXIETY
     Dates: start: 20110113
  5. HUMIRA [Suspect]
     Dates: start: 20110201
  6. HUMIRA [Suspect]
     Indication: CROHN'S DISEASE
     Route: 058
     Dates: start: 20110101, end: 20110201

REACTIONS (8)
  - DIARRHOEA HAEMORRHAGIC [None]
  - PROCTOCOLITIS [None]
  - WEIGHT DECREASED [None]
  - GASTROINTESTINAL INFECTION [None]
  - DIARRHOEA [None]
  - ANORECTAL INFECTION [None]
  - ABDOMINAL PAIN UPPER [None]
  - ABDOMINAL PAIN [None]
